FAERS Safety Report 7753778-3 (Version None)
Quarter: 2011Q3

REPORT INFORMATION
  Report Type: 
  Country: None (occurrence: None)
  Receive Date: 20110915
  Receipt Date: 20110909
  Transmission Date: 20111222
  Serious: Yes (Hospitalization)
  Sender: FDA-Public Use
  Company Number: NL-AMGEN-NLDSP2011046481

PATIENT
  Age: 54 Year
  Sex: Female

DRUGS (14)
  1. NEULASTA [Suspect]
     Indication: PROPHYLAXIS
  2. NEXIUM [Concomitant]
     Dosage: UNK
     Dates: start: 20110726
  3. CAD [Concomitant]
  4. ACETAMINOPHEN [Concomitant]
  5. ONDANSETRON [Concomitant]
     Indication: PROPHYLAXIS
  6. DEXAMETHASONE [Concomitant]
     Indication: PROPHYLAXIS
  7. GRANISETRON [Concomitant]
     Indication: PROPHYLAXIS
  8. CYCLOPHOSPHAMIDE [Suspect]
     Indication: BREAST CANCER
     Dosage: 950 MG, QD
     Route: 042
     Dates: start: 20110819
  9. DOCETAXEL [Suspect]
     Indication: BREAST CANCER
     Dosage: 140 MG, QD
     Route: 042
     Dates: start: 20110819
  10. NYSTATINE [Concomitant]
     Dosage: UNK
     Dates: start: 20110726
  11. DOXORUBICIN HCL [Suspect]
     Indication: BREAST CANCER
     Dosage: 95 MG, QD
     Route: 042
     Dates: start: 20110819
  12. CIPROXIN                           /00697201/ [Concomitant]
     Dosage: UNK
     Dates: start: 20110823, end: 20110902
  13. ZOLEDRONIC ACID [Suspect]
     Indication: BREAST CANCER
     Dosage: 4.0 MG, QD
     Route: 042
  14. ANTAGEL                            /00002901/ [Concomitant]

REACTIONS (2)
  - PROCTOCOLITIS [None]
  - HAEMORRHOIDS [None]
